FAERS Safety Report 5467058-2 (Version None)
Quarter: 2007Q3

REPORT INFORMATION
  Report Type: 
  Country: None (occurrence: None)
  Receive Date: 20070925
  Receipt Date: 20070918
  Transmission Date: 20080115
  Serious: Yes (Hospitalization)
  Sender: FDA-Public Use
  Company Number: D0054395A

PATIENT
  Age: 57 Year
  Sex: Female
  Weight: 92 kg

DRUGS (4)
  1. AVANDAMET [Suspect]
     Indication: TYPE 2 DIABETES MELLITUS
     Dosage: 502MG TWICE PER DAY
     Route: 048
     Dates: start: 20040805
  2. LISINOPRIL [Concomitant]
     Indication: CARDIAC FAILURE
     Dosage: 10MG TWICE PER DAY
     Route: 048
     Dates: start: 20010101
  3. BERLTHYROX [Concomitant]
     Indication: HYPOTHYROIDISM
     Dosage: 50UG TWICE PER DAY
     Route: 048
     Dates: start: 20010101
  4. METFORMIN HCL [Concomitant]
     Indication: TYPE 2 DIABETES MELLITUS
     Dosage: 850MG AT NIGHT
     Route: 048
     Dates: start: 20010101

REACTIONS (1)
  - RADIUS FRACTURE [None]
